FAERS Safety Report 6187292-6 (Version None)
Quarter: 2009Q2

REPORT INFORMATION
  Report Type: 
  Country: None (occurrence: None)
  Receive Date: 20090512
  Receipt Date: 20090501
  Transmission Date: 20091009
  Serious: Yes (Life-Threatening, Other)
  Sender: FDA-Public Use
  Company Number: US-JNJFOC-20080707093

PATIENT
  Sex: Female
  Weight: 90.72 kg

DRUGS (23)
  1. REMICADE [Suspect]
     Route: 042
  2. REMICADE [Suspect]
     Route: 042
  3. REMICADE [Suspect]
     Route: 042
  4. REMICADE [Suspect]
     Route: 042
  5. REMICADE [Suspect]
     Route: 042
  6. REMICADE [Suspect]
     Route: 042
  7. REMICADE [Suspect]
     Route: 042
  8. REMICADE [Suspect]
     Route: 042
  9. REMICADE [Suspect]
     Route: 042
  10. REMICADE [Suspect]
     Route: 042
  11. REMICADE [Suspect]
     Route: 042
  12. REMICADE [Suspect]
     Route: 042
  13. REMICADE [Suspect]
     Indication: CROHN'S DISEASE
     Route: 042
  14. ANTIHISTAMINES [Concomitant]
  15. ANTIHISTAMINES [Concomitant]
  16. ANTIHISTAMINES [Concomitant]
  17. ANTIHISTAMINES [Concomitant]
  18. ANTIHISTAMINES [Concomitant]
  19. ANTIHISTAMINES [Concomitant]
  20. ANTIHISTAMINES [Concomitant]
  21. ANTIHISTAMINES [Concomitant]
  22. ANTIHISTAMINES [Concomitant]
     Indication: PREMEDICATION
  23. MERCAPTOPURINE [Concomitant]
     Indication: CROHN'S DISEASE

REACTIONS (3)
  - BRAIN CANCER METASTATIC [None]
  - DIARRHOEA [None]
  - LUNG CANCER METASTATIC [None]
